APPROVED DRUG PRODUCT: HEPARIN LOCK FLUSH
Active Ingredient: HEPARIN SODIUM
Strength: 100 UNITS/ML
Dosage Form/Route: INJECTABLE;INJECTION
Application: A089064 | Product #001
Applicant: LUITPOLD PHARMACEUTICALS INC
Approved: Oct 9, 1985 | RLD: No | RS: No | Type: DISCN